FAERS Safety Report 5698606-5 (Version None)
Quarter: 2008Q2

REPORT INFORMATION
  Report Type: 
  Country: None (occurrence: None)
  Receive Date: 20080408
  Receipt Date: 20061106
  Transmission Date: 20081010
  Serious: Yes (Other)
  Sender: FDA-Public Use
  Company Number: US-BAYER-US-2006-034534

PATIENT
  Sex: Female

DRUGS (3)
  1. CLIMARA [Suspect]
     Route: 062
  2. CLIMARA [Suspect]
     Route: 062
  3. CLIMARA [Suspect]
     Route: 062

REACTIONS (3)
  - ALOPECIA [None]
  - ANGINA PECTORIS [None]
  - BLOOD IRON ABNORMAL [None]
